FAERS Safety Report 8862556 (Version 2)
Quarter: 2012Q4

REPORT INFORMATION
  Report Type: 
  Country: GB (occurrence: GB)
  Receive Date: 20121026
  Receipt Date: 20121106
  Transmission Date: 20130627
  Serious: Yes (Other)
  Sender: FDA-Public Use
  Company Number: GB-JNJFOC-20121010803

PATIENT

DRUGS (6)
  1. DOXORUBICIN [Suspect]
     Indication: SARCOMA
     Dosage: for 20 min at day 1
     Route: 042
  2. DOXORUBICIN [Suspect]
     Indication: SARCOMA
     Dosage: for 20 min at day 1
     Route: 042
  3. IFOSFAMIDE [Suspect]
     Indication: SARCOMA
     Dosage: for 24 hours at day 1
     Route: 042
  4. MESNA [Suspect]
     Indication: SARCOMA
     Dosage: for 24 hours at day 1
     Route: 042
  5. LENOGRASTIM [Suspect]
     Indication: SARCOMA
     Dosage: for 14 days, starting 24 hours after completing ifosfamide
     Route: 058
  6. RADIOTHERAPY [Concomitant]
     Indication: SARCOMA
     Route: 065

REACTIONS (22)
  - Disease progression [Unknown]
  - Sarcoma [Unknown]
  - Nervous system disorder [Unknown]
  - Infection [Unknown]
  - White blood cell count abnormal [Unknown]
  - Neutrophil count abnormal [Unknown]
  - Platelet count abnormal [Unknown]
  - Haemoglobin abnormal [Unknown]
  - Blood creatinine abnormal [Unknown]
  - Blood bilirubin abnormal [Unknown]
  - Aspartate aminotransferase abnormal [Unknown]
  - Alanine aminotransferase abnormal [Unknown]
  - Nausea [Unknown]
  - Vomiting [Unknown]
  - Mucosal inflammation [Unknown]
  - Alopecia [Unknown]
  - Cardiac disorder [Unknown]
  - Second primary malignancy [Unknown]
  - Metastasis [Unknown]
  - Pyrexia [Unknown]
  - Off label use [Unknown]
  - Diarrhoea [Unknown]
